FAERS Safety Report 8441803 (Version 6)
Quarter: 2013Q1

REPORT INFORMATION
  Report Type: Spontaneous
  Country: US (occurrence: US)
  Receive Date: 20120305
  Receipt Date: 20130321
  Transmission Date: 20140127
  Serious: Yes (Other)
  Sender: FDA-Public Use
  Company Number: US-PFIZER INC-2012052697

PATIENT
  Age: 32 Year
  Sex: Female

DRUGS (32)
  1. LYRICA [Suspect]
     Dosage: 50 MG
  2. LYRICA [Suspect]
     Dosage: 150 MG, 3X/DAY
     Route: 048
  3. LYRICA [Suspect]
     Dosage: 150 MG, 4X/DAY
     Route: 048
  4. CELEBREX [Suspect]
     Dosage: 200 MG, 2X/DAY
     Route: 048
  5. ALBUTEROL [Concomitant]
     Indication: WHEEZING
     Dosage: 90 MCG/ACTUATION INHALER, INHALE 2 PUFFS INTO THE LUNGS 4 TIMES DAILY AS NEEDED
  6. SYMBICORT [Concomitant]
     Dosage: 80-4.5 MCG/ACTUATION INHALER, INHALE 2 PUFFS INTO THE LUNGS 2 TIMES DAILY
  7. ZYRTEC [Concomitant]
     Dosage: 10 MG, TAKE ONE TABLET BY MOUTH DAILY
     Route: 048
  8. VITAMIN D3 [Concomitant]
     Dosage: 5000 UNIT TAB, TAKE ONE TABLET DAILY
     Route: 048
  9. CELEXA [Concomitant]
     Dosage: 40 MG, TAKE ONE TABLET DAILY
     Route: 048
  10. CYMBALTA [Concomitant]
     Dosage: 60 MG, TAKE ONE CAPSULE DAILY.
     Route: 048
  11. CYMBALTA [Concomitant]
     Dosage: 60 MG, 2X/DAY, TAKE ONE CAPSULE BY MOUTH TWO TIMES DAILY
     Route: 048
  12. NEXIUM [Concomitant]
     Dosage: 40 MG, TAKE ONE CAPSULE EVERY MORNING BEFORE BREAKFAST
     Route: 048
  13. LASIX [Concomitant]
     Dosage: 20 MG, TAKE ONE TABLET
     Route: 048
  14. SYNTHROID [Concomitant]
     Dosage: 100 UG, TAKE ONE TABLET DAILY
     Route: 048
  15. SYNTHROID [Concomitant]
     Dosage: 100 UG, TAKE 1 ? TABLET BY MOUTH ON MON,WED AND FRI AND 1 ALL OTHER DAYS
     Route: 048
  16. AMITIZA [Concomitant]
     Dosage: 24 UG, TAKE ONE CAPSULE TWO TIMES DAILY
     Route: 048
  17. K-DUR [Concomitant]
     Dosage: 20 MEQ, TAKE ONE TABLET DAILY
     Route: 048
  18. PSYLLIUM [Concomitant]
     Dosage: TAKE ONE PACKAGE TWICE DAILY
     Route: 048
  19. RISPERDAL [Concomitant]
     Dosage: 2 MG, TAKE ONE TABLET NIGHTLY
     Route: 048
  20. RISPERDAL [Concomitant]
     Dosage: 4 MG, (2 MG TABLET, TAKE 2 TABLETS BY MOUTH NIGHTLY)
  21. TRICOR [Concomitant]
     Dosage: 145 MG, TAKE ONE TABLET DAILY
     Route: 048
  22. LOVAZA [Concomitant]
     Dosage: 1 G, 2X/DAY
     Route: 048
  23. VICTOZA [Concomitant]
     Dosage: 0.6 MG/0.1ML (18 MG/3ML) PNLJ: INJECT 0.6 MG INTO THE SKIN DAILY.
     Route: 062
  24. VICTOZA [Concomitant]
     Dosage: UNK (INJECT 1.2 MG INTO THE SKIN DAILY)
  25. PETROLATUM [Concomitant]
     Dosage: APPLY AS NEEDED
  26. DIFLUCAN [Concomitant]
     Dosage: 150 MG, TAKE TABLET NOW REPEAT IN TWO DAYS
     Route: 048
  27. LIDODERM [Concomitant]
     Dosage: PLACE 1 PATCH ONTO THE SKIN DAILY. REMOVE AND DISCARD PATCH WITHIN 12 HOURS OR AS DIRECTED BY MD
  28. MELATONIN [Concomitant]
     Dosage: 3 MG, TAKE 1 TABLET BY MOUTH NIGHTLY
     Route: 048
  29. CLARINEX [Concomitant]
     Dosage: 5 MG, (TAKE 1 TABLET BY MOUTH DAILY)
     Route: 048
  30. FLEXERIL [Concomitant]
     Indication: MUSCLE SPASMS
     Dosage: 10 MG, 3X/DAY (TAKE 1 TABLET BY MOUTH 3TIMES DAILY AS NEEDED )
     Route: 048
  31. ESTROGENS CONJUGATED [Concomitant]
     Dosage: UNK (TAKE 1 TABLET BY MOUTH)
     Route: 048
  32. BISACODYL [Concomitant]
     Dosage: 5 MG, 1X/DAY
     Route: 048

REACTIONS (16)
  - Bipolar I disorder [Unknown]
  - Depression [Unknown]
  - Hypothyroidism [Unknown]
  - Chronic obstructive pulmonary disease [Unknown]
  - Gastrooesophageal reflux disease [Unknown]
  - Vitamin B12 deficiency [Unknown]
  - Vitamin D deficiency [Unknown]
  - Irritable bowel syndrome [Unknown]
  - Pernicious anaemia [Unknown]
  - Rhinitis allergic [Unknown]
  - Neuropathy peripheral [Unknown]
  - Oedema peripheral [Unknown]
  - Obesity [Unknown]
  - Back pain [Unknown]
  - Blood cholesterol increased [Unknown]
  - Insomnia [Unknown]
